FAERS Safety Report 6119026-5 (Version None)
Quarter: 2009Q1

REPORT INFORMATION
  Report Type: 
  Country: None (occurrence: None)
  Receive Date: 20090316
  Receipt Date: 20090305
  Transmission Date: 20090719
  Serious: Yes (Death)
  Sender: FDA-Public Use
  Company Number: CH-BAYER-200915891GPV

PATIENT
  Age: 61 Year
  Sex: Male

DRUGS (2)
  1. REFLUDAN [Suspect]
     Indication: DRUG USE FOR UNKNOWN INDICATION
     Route: 058
  2. ORGARAN [Suspect]
     Indication: DRUG USE FOR UNKNOWN INDICATION
     Route: 058

REACTIONS (2)
  - MULTI-ORGAN FAILURE [None]
  - THROMBOSIS IN DEVICE [None]
